FAERS Safety Report 24766354 (Version 1)
Quarter: 2024Q4

REPORT INFORMATION
  Report Type: Spontaneous
  Country: PL (occurrence: PL)
  Receive Date: 20241223
  Receipt Date: 20241223
  Transmission Date: 20250115
  Serious: Yes (Other)
  Sender: PFIZER
  Company Number: None

PATIENT
  Age: 78 Year
  Sex: Female
  Weight: 68 kg

DRUGS (4)
  1. IRINOTECAN [Suspect]
     Active Substance: IRINOTECAN
     Indication: Colon cancer
     Dosage: 240 (UNIT UNKNOWN)
     Route: 042
     Dates: start: 20181204
  2. FLUOROURACIL [Suspect]
     Active Substance: FLUOROURACIL
     Indication: Colon cancer
     Dosage: 2500 IU
     Route: 042
     Dates: start: 20181204
  3. ZALTRAP [Concomitant]
     Active Substance: ZIV-AFLIBERCEPT
     Indication: Colon cancer
     Dosage: 272 (UNKNOWN UNIT); THERAPY ONGOING
     Route: 042
     Dates: start: 20181204
  4. LEVOLEUCOVORIN [Concomitant]
     Active Substance: LEVOLEUCOVORIN
     Indication: Colon cancer
     Dosage: 300 UNK
     Route: 042
     Dates: start: 20181204

REACTIONS (3)
  - Asthenia [Recovering/Resolving]
  - Neutropenia [Recovering/Resolving]
  - Pharyngitis [Recovering/Resolving]
